FAERS Safety Report 19146103 (Version 2)
Quarter: 2021Q2

REPORT INFORMATION
  Report Type: Report from Study
  Country: IL (occurrence: IL)
  Receive Date: 20210416
  Receipt Date: 20210514
  Transmission Date: 20210717
  Serious: Yes (Hospitalization)
  Sender: FDA-Public Use
  Company Number: IL-TG THERAPEUTICS INC.-TGT001884

PATIENT

DRUGS (2)
  1. UBLITUXIMAB [Suspect]
     Active Substance: UBLITUXIMAB
     Indication: NON-HODGKIN^S LYMPHOMA
     Dosage: 900 MILLIGRAM
     Dates: start: 20200714
  2. UMBRALISIB [Suspect]
     Active Substance: UMBRALISIB
     Indication: NON-HODGKIN^S LYMPHOMA
     Dosage: 600 MILLIGRAM
     Dates: start: 20200714

REACTIONS (1)
  - Pulmonary congestion [Recovered/Resolved]

NARRATIVE: CASE EVENT DATE: 20210329
